FAERS Safety Report 5696101-0 (Version None)
Quarter: 2008Q2

REPORT INFORMATION
  Report Type: 
  Country: None (occurrence: None)
  Receive Date: 20080407
  Receipt Date: 20080327
  Transmission Date: 20081010
  Serious: Yes (Hospitalization)
  Sender: FDA-Public Use
  Company Number: US-ROCHE-521962

PATIENT
  Sex: Male
  Weight: 59.5 kg

DRUGS (23)
  1. PEGASYS [Suspect]
     Indication: HEPATITIS C
     Route: 058
     Dates: start: 20070615, end: 20070715
  2. RIBAVIRIN [Suspect]
     Indication: HEPATITIS C
     Route: 048
     Dates: start: 20070615, end: 20070717
  3. BLINDED VX-950 [Suspect]
     Indication: HEPATITIS C
     Route: 048
     Dates: start: 20070615, end: 20070717
  4. ACTOS [Concomitant]
     Route: 048
  5. ZETIA [Concomitant]
     Route: 048
  6. GEMFIBROZIL [Concomitant]
     Route: 048
  7. BENICAR [Concomitant]
     Route: 048
  8. PAXIL [Concomitant]
     Route: 048
  9. FLOMAX [Concomitant]
     Route: 048
  10. FLOMAX [Concomitant]
     Route: 048
  11. COMPAZINE [Concomitant]
  12. NORVASC [Concomitant]
  13. VICODIN ES [Concomitant]
     Indication: PAIN
  14. VICODIN ES [Concomitant]
  15. BETHANECHOL [Concomitant]
  16. UNSPECIFIED DRUG [Concomitant]
     Dosage: REPORTED AS: CITRA.
  17. CIPRO [Concomitant]
     Indication: EAR INFECTION
     Route: 048
  18. MEGACE [Concomitant]
     Route: 048
  19. COENZYME Q10 [Concomitant]
  20. DANDELION ROOT [Concomitant]
  21. GOLD SEAL ANTISEPTIC POWDER [Concomitant]
  22. FISH OIL [Concomitant]
  23. MILK THISTLE [Concomitant]

REACTIONS (13)
  - ANAEMIA [None]
  - ANOREXIA [None]
  - CALCULUS BLADDER [None]
  - DEHYDRATION [None]
  - EATING DISORDER [None]
  - FATIGUE [None]
  - MALAISE [None]
  - NAUSEA [None]
  - NEPHROLITHIASIS [None]
  - REFUSAL OF TREATMENT BY PATIENT [None]
  - RENAL FAILURE CHRONIC [None]
  - RENAL TUBULAR ACIDOSIS [None]
  - WEIGHT DECREASED [None]
